FAERS Safety Report 6657887 (Version 2)
Quarter: 2020Q3

REPORT INFORMATION
  Report Type: Report from Study
  Country: AR (occurrence: AR)
  Receive Date: 20080605
  Receipt Date: 20081202
  Transmission Date: 20201105
  Serious: Yes (Other)
  Sender: FDA-Public Use
  Company Number: AR-WYE-H04242808

PATIENT
  Age: 63 Year
  Sex: Female
  Weight: 64 kg

DRUGS (1)
  1. TACROLIMUS. [Suspect]
     Active Substance: TACROLIMUS
     Indication: PROPHYLAXIS AGAINST TRANSPLANT REJECTION
     Route: 048
     Dates: start: 20051111, end: 20080417

REACTIONS (1)
  - Malignant melanoma in situ [Recovered/Resolved]

NARRATIVE: CASE EVENT DATE: 20080319
